FAERS Safety Report 13450332 (Version 1)
Quarter: 2017Q2

REPORT INFORMATION
  Report Type: Spontaneous
  Country: US (occurrence: US)
  Receive Date: 20170417
  Receipt Date: 20170417
  Transmission Date: 20170830
  Serious: No
  Sender: FDA-Public Use
  Company Number: None

PATIENT

DRUGS (2)
  1. HYPERRHO S/D MINI-DOSE [Suspect]
     Active Substance: HUMAN RHO(D) IMMUNE GLOBULIN
  2. HYPERRHO S/D FULL DOSE [Suspect]
     Active Substance: HUMAN RHO(D) IMMUNE GLOBULIN

REACTIONS (1)
  - Product label confusion [None]
